FAERS Safety Report 5815376-8 (Version None)
Quarter: 2008Q3

REPORT INFORMATION
  Report Type: 
  Country: None (occurrence: None)
  Receive Date: 20080715
  Receipt Date: 20080630
  Transmission Date: 20090109
  Serious: Yes (Hospitalization)
  Sender: FDA-Public Use
  Company Number: DSA_32091_2008

PATIENT
  Sex: Female

DRUGS (5)
  1. LORAZEPAM [Suspect]
     Dosage: ORAL
     Route: 048
     Dates: start: 20080630, end: 20080630
  2. PLANUM/00393701/ (LANUM - TAMAZEPAM) (NOT SPECIFIED) [Suspect]
     Dosage: ORAL
     Route: 048
     Dates: start: 20080630, end: 20080630
  3. TRICYCLIC ANTIDEPRESSANTS (TRICYCLIC ANTIDEPRESSANTS) [Suspect]
     Dosage: ORAL
     Route: 048
     Dates: start: 20080630, end: 20080630
  4. ETHANOL (ALCOHOL - ETHANOL) [Suspect]
     Dosage: ORAL
     Route: 048
     Dates: start: 20080630, end: 20080630
  5. CANNABIS (CANNABIS) [Suspect]
     Dates: start: 20080630, end: 20080630

REACTIONS (4)
  - COMA [None]
  - DRUG ABUSE [None]
  - DRUG SCREEN POSITIVE [None]
  - PUPILLARY REFLEX IMPAIRED [None]
